FAERS Safety Report 7386526-X (Version None)
Quarter: 2011Q1

REPORT INFORMATION
  Report Type: 
  Country: None (occurrence: None)
  Receive Date: 20110331
  Receipt Date: 20110322
  Transmission Date: 20110831
  Serious: Yes (Hospitalization, Other)
  Sender: FDA-Public Use
  Company Number: US-ROCHE-552223

PATIENT
  Sex: Female
  Weight: 68 kg

DRUGS (4)
  1. ACCUTANE [Suspect]
     Route: 065
     Dates: start: 20010628
  2. ACCUTANE [Suspect]
     Route: 065
  3. ACCUTANE [Suspect]
     Route: 065
     Dates: start: 20011009, end: 20020102
  4. CLEOCIN T [Concomitant]
     Dates: start: 19990122

REACTIONS (14)
  - BLOOD TRIGLYCERIDES INCREASED [None]
  - EPISTAXIS [None]
  - APPENDICITIS [None]
  - IRRITABLE BOWEL SYNDROME [None]
  - DEPRESSION [None]
  - RHINORRHOEA [None]
  - SUICIDAL IDEATION [None]
  - INFLAMMATORY BOWEL DISEASE [None]
  - CHEILITIS [None]
  - WHITE BLOOD CELL COUNT INCREASED [None]
  - COLITIS ULCERATIVE [None]
  - ANAEMIA [None]
  - CROHN'S DISEASE [None]
  - BIPOLAR DISORDER [None]
